FAERS Safety Report 6761842-0 (Version None)
Quarter: 2010Q2

REPORT INFORMATION
  Report Type: 
  Country: None (occurrence: None)
  Receive Date: 20100607
  Receipt Date: 20100303
  Transmission Date: 20101027
  Serious: Yes (Other)
  Sender: FDA-Public Use
  Company Number: DSA_43097_2010

PATIENT
  Age: 43 Year
  Sex: Male
  Weight: 113.3993 kg

DRUGS (6)
  1. ATIVAN [Suspect]
     Indication: ANXIETY
     Dosage: (DF)
     Dates: start: 20100324, end: 20100327
  2. ATIVAN [Suspect]
     Indication: FEELING JITTERY
     Dosage: (DF)
     Dates: start: 20100324, end: 20100327
  3. ATIVAN [Suspect]
     Indication: TACHYPHRENIA
     Dosage: (DF)
     Dates: start: 20100324, end: 20100327
  4. CHANTIX [Suspect]
     Indication: EX-TOBACCO USER
     Dosage: (0.5 MG QD ORAL), (1 MG BID ORAL)
     Route: 048
     Dates: end: 20100324
  5. CHANTIX [Suspect]
     Indication: EX-TOBACCO USER
     Dosage: (0.5 MG QD ORAL), (1 MG BID ORAL)
     Route: 048
     Dates: start: 20091228
  6. BEENICAR [Concomitant]

REACTIONS (3)
  - AMNESIA [None]
  - FATIGUE [None]
  - THINKING ABNORMAL [None]
